FAERS Safety Report 5933434-4 (Version None)
Quarter: 2008Q4

REPORT INFORMATION
  Report Type: 
  Country: None (occurrence: None)
  Receive Date: 20081023
  Receipt Date: 20081015
  Transmission Date: 20090506
  Serious: Yes (Other)
  Sender: FDA-Public Use
  Company Number: 2008SP019399

PATIENT
  Age: 62 Year
  Sex: Female

DRUGS (12)
  1. PEG-INTRON [Suspect]
     Indication: HEPATITIS C
     Dosage: SC
     Route: 058
     Dates: start: 20080419
  2. REBETOL [Suspect]
     Indication: HEPATITIS C
     Dosage: PO
     Route: 048
     Dates: start: 20080419
  3. THEOPHYLLINE [Concomitant]
  4. AMBIEN [Concomitant]
  5. BENADRYL [Concomitant]
  6. ZYRTEC [Concomitant]
  7. SINGULAIR [Concomitant]
  8. ADVAIR DISKUS 100/50 [Concomitant]
  9. ADVIL [Concomitant]
  10. ALBUTEROL [Concomitant]
  11. XYZAL [Concomitant]
  12. FOSAMAX [Concomitant]

REACTIONS (8)
  - ALOPECIA [None]
  - ANXIETY [None]
  - EMOTIONAL DISORDER [None]
  - GLAUCOMA [None]
  - INFLUENZA LIKE ILLNESS [None]
  - IRRITABILITY [None]
  - PARAESTHESIA [None]
  - RASH PRURITIC [None]
